FAERS Safety Report 5480344-5 (Version None)
Quarter: 2007Q3

REPORT INFORMATION
  Report Type: 
  Country: None (occurrence: None)
  Receive Date: 20070914
  Receipt Date: 20061120
  Transmission Date: 20080115
  Serious: Yes (Death)
  Sender: FDA-Public Use
  Company Number: 06P-163-0350924-00

PATIENT
  Sex: 0

DRUGS (1)
  1. SYNTHROID [Suspect]

REACTIONS (1)
  - DEATH [None]
